FAERS Safety Report 18822752 (Version 1)
Quarter: 2021Q1

REPORT INFORMATION
  Report Type: Spontaneous
  Country: US (occurrence: US)
  Receive Date: 20210202
  Receipt Date: 20210202
  Transmission Date: 20210419
  Serious: Yes (Hospitalization, Other)
  Sender: FDA-Public Use
  Company Number: US-SA-2021SA030634

PATIENT
  Age: 77 Year
  Sex: Female
  Weight: 63.9 kg

DRUGS (2)
  1. PENICILLINE [BENZYLPENICILLIN] [Suspect]
     Active Substance: PENICILLIN G
  2. LANTUS [Suspect]
     Active Substance: INSULIN GLARGINE
     Indication: DIABETES MELLITUS
     Dosage: 40 U, Q12H
     Route: 058
     Dates: start: 20190213

REACTIONS (5)
  - Sepsis [Unknown]
  - Pruritus [Unknown]
  - Drug hypersensitivity [Unknown]
  - Dermatitis allergic [Unknown]
  - Inappropriate schedule of product administration [Unknown]

NARRATIVE: CASE EVENT DATE: 20190213
